FAERS Safety Report 5785038-4 (Version None)
Quarter: 2008Q2

REPORT INFORMATION
  Report Type: 
  Country: None (occurrence: None)
  Receive Date: 20080605
  Receipt Date: 20080418
  Transmission Date: 20081010
  Serious: No
  Sender: FDA-Public Use
  Company Number: A0723610A

PATIENT
  Age: 39 Year
  Sex: Female

DRUGS (6)
  1. ALLI [Suspect]
  2. IRON [Concomitant]
  3. MULTI-VITAMIN [Concomitant]
  4. FOLIC ACID [Concomitant]
  5. VIATIN (GENERAL HEALTH) [Concomitant]
  6. ZINC [Concomitant]

REACTIONS (2)
  - BOWEL MOVEMENT IRREGULARITY [None]
  - CONSTIPATION [None]
